FAERS Safety Report 6188764-0 (Version None)
Quarter: 2009Q2

REPORT INFORMATION
  Report Type: 
  Country: None (occurrence: None)
  Receive Date: 20090513
  Receipt Date: 20090504
  Transmission Date: 20091009
  Serious: Yes (Other)
  Sender: FDA-Public Use
  Company Number: US-JNJCH-2009012556

PATIENT
  Age: 59 Year
  Sex: Female
  Weight: 89.4 kg

DRUGS (18)
  1. VISINE-A [Suspect]
     Indication: DRY EYE
     Dosage: TEXT:TWO DROPS IN EACH EYE (FREQ UNSPECIFIED)
     Route: 047
  2. ZOLOFT [Concomitant]
     Indication: DEPRESSION
     Dosage: TEXT:100 MG (FREQUENCY UNSPECIFIED)
     Route: 065
  3. CRESTOR [Concomitant]
     Indication: BLOOD CHOLESTEROL INCREASED
     Dosage: TEXT:10 MG (FREQUENCY UNSPECIFIED)
     Route: 065
  4. SPIRONOLACTONE [Concomitant]
     Indication: DIURETIC THERAPY
     Dosage: TEXT:25 MG (FREQUENCY UNSPECIFIED)
     Route: 065
  5. BUMETANIDE [Concomitant]
     Indication: DIURETIC THERAPY
     Dosage: TEXT:1 MG THREE TIMES DAILY
     Route: 065
  6. FOLIC ACID [Concomitant]
     Indication: DRUG USE FOR UNKNOWN INDICATION
     Dosage: TEXT:1 MG TWICE DAILY
     Route: 065
  7. AMARYL [Concomitant]
     Indication: DIABETES MELLITUS
     Dosage: TEXT:4 MG DAILY
     Route: 065
  8. POTASSIUM CHLORIDE [Concomitant]
     Indication: DRUG USE FOR UNKNOWN INDICATION
     Dosage: TEXT:10 MG TWICE DAILY
     Route: 065
  9. ATENOLOL [Concomitant]
     Indication: CARDIAC DISORDER
     Dosage: TEXT:50 MG DAILY
     Route: 065
  10. TRAMADOL [Concomitant]
     Indication: PAIN
     Dosage: TEXT:50 MG DAILY
     Route: 065
  11. DRUG, UNSPECIFIED [Concomitant]
     Indication: BLOOD GLUCOSE ABNORMAL
     Dosage: TEXT:50 MG DAILY
     Route: 065
  12. FUROSEMIDE [Concomitant]
     Indication: DIURETIC THERAPY
     Dosage: TEXT:20 MG DAILY
     Route: 065
  13. NEXIUM [Concomitant]
     Indication: GASTRIC DISORDER
     Dosage: TEXT:40 MG (FREQUENCY UNSPECIFIED)
     Route: 065
  14. VITAMIN B-12 [Concomitant]
     Indication: DRUG USE FOR UNKNOWN INDICATION
     Dosage: TEXT:UNSPECIFIED MONTHLY
     Route: 065
  15. PREDNISONE [Concomitant]
     Indication: ARTHRITIS
     Dosage: TEXT:5 MG DAILY
     Route: 065
  16. SALAGEN [Concomitant]
     Indication: SALIVARY HYPERSECRETION
     Dosage: TEXT:5 MG THREE TIMES DAILY
     Route: 065
  17. METHOTREXATE [Concomitant]
     Indication: ARTHRITIS
     Dosage: TEXT:2.5 MG, FIVE TABLETS DAILY
     Route: 065
  18. FOSAMAX [Concomitant]
     Indication: BONE DISORDER
     Dosage: TEXT:70 MG WEEKLY
     Route: 065

REACTIONS (1)
  - APPLICATION SITE BURN [None]
